FAERS Safety Report 22140445 (Version 2)
Quarter: 2023Q2

REPORT INFORMATION
  Report Type: Spontaneous
  Country: GR (occurrence: GR)
  Receive Date: 20230327
  Receipt Date: 20230403
  Transmission Date: 20230722
  Serious: Yes (Other)
  Sender: FDA-Public Use
  Company Number: GR-MYLANLABS-2023M1031155

PATIENT
  Age: 12 Year
  Sex: Male

DRUGS (2)
  1. CYSTAGON [Suspect]
     Active Substance: CYSTEAMINE BITARTRATE
     Indication: Product used for unknown indication
     Dosage: 150 MILLIGRAM, QID (4X150 MILLIGRAM/X4 PER DAY)
     Route: 065
     Dates: start: 202301, end: 202303
  2. CYSTAGON [Suspect]
     Active Substance: CYSTEAMINE BITARTRATE
     Dosage: 150 MILLIGRAM, QID (12X50MG X 4/D) (START DATE:16-MAR-2023))
     Route: 065

REACTIONS (8)
  - Abdominal pain upper [Recovered/Resolved]
  - Product physical issue [Unknown]
  - Product odour abnormal [Unknown]
  - Pollakiuria [Unknown]
  - Headache [Unknown]
  - Decreased appetite [Unknown]
  - Nausea [Unknown]
  - Vomiting [Unknown]

NARRATIVE: CASE EVENT DATE: 20230201
